FAERS Safety Report 9659862 (Version 2)
Quarter: 2013Q4

REPORT INFORMATION
  Report Type: Spontaneous
  Country: DE (occurrence: DE)
  Receive Date: 20131031
  Receipt Date: 20131211
  Transmission Date: 20140711
  Serious: Yes (Life-Threatening, Hospitalization)
  Sender: FDA-Public Use
  Company Number: DE-JNJFOC-20131018090

PATIENT
  Age: 84 Year
  Sex: Female
  Weight: 70 kg

DRUGS (7)
  1. XARELTO [Suspect]
     Indication: CEREBROVASCULAR ACCIDENT PROPHYLAXIS
     Route: 048
  2. XARELTO [Suspect]
     Indication: ATRIAL FIBRILLATION
     Route: 048
  3. CONCOR [Concomitant]
     Indication: ARRHYTHMIA
     Route: 048
  4. ALENDRONIC ACID [Concomitant]
     Indication: OSTEOPOROSIS
     Route: 048
  5. BIPRETERAX [Concomitant]
     Route: 048
  6. DEKRISTOL [Concomitant]
     Route: 065
  7. CALCILAC [Concomitant]
     Route: 065

REACTIONS (4)
  - Fall [Recovered/Resolved]
  - Craniocerebral injury [Not Recovered/Not Resolved]
  - Subdural haematoma [Not Recovered/Not Resolved]
  - Subarachnoid haemorrhage [Not Recovered/Not Resolved]
